FAERS Safety Report 7206275-8 (Version None)
Quarter: 2011Q1

REPORT INFORMATION
  Report Type: 
  Country: None (occurrence: None)
  Receive Date: 20110103
  Receipt Date: 20101221
  Transmission Date: 20110831
  Serious: Yes (Other)
  Sender: FDA-Public Use
  Company Number: PHEH2007US09561

PATIENT
  Sex: Female

DRUGS (2)
  1. VOLTAREN [Suspect]
     Indication: FIBROMYALGIA
     Dosage: 75 MG, UNK
     Route: 048
  2. DICLOFENAC SODIUM D.R. TABLETS USP [Suspect]
     Route: 048

REACTIONS (7)
  - DISTURBANCE IN ATTENTION [None]
  - DIZZINESS [None]
  - ACCIDENT [None]
  - BALANCE DISORDER [None]
  - TREATMENT NONCOMPLIANCE [None]
  - JOINT SWELLING [None]
  - FALL [None]
